FAERS Safety Report 19641357 (Version 1)
Quarter: 2021Q3

REPORT INFORMATION
  Report Type: Report from Study
  Country: JP (occurrence: JP)
  Receive Date: 20210730
  Receipt Date: 20210730
  Transmission Date: 20211014
  Serious: Yes (Life-Threatening, Hospitalization, Other)
  Sender: FDA-Public Use
  Company Number: JP-JNJFOC-A-CH2017-150928

PATIENT
  Age: 20 Year
  Sex: Male
  Weight: 49 kg

DRUGS (40)
  1. UPTRAVI [Suspect]
     Active Substance: SELEXIPAG
     Dosage: 1.2 MG, BID
     Route: 048
     Dates: start: 20171125
  2. DIART [AZOSEMIDE] [Concomitant]
     Active Substance: AZOSEMIDE
     Indication: CARDIAC FAILURE
     Dosage: 90 MG, QD
  3. ZYLORIC [Concomitant]
     Active Substance: ALLOPURINOL
     Indication: HYPERURICAEMIA
     Dosage: 100 MG, QD
     Dates: end: 20170905
  4. TRANSAMIN [Concomitant]
     Active Substance: TRANEXAMIC ACID
  5. UPTRAVI [Suspect]
     Active Substance: SELEXIPAG
     Indication: PULMONARY ARTERIAL HYPERTENSION
     Dosage: 1.2 MG, BID
     Route: 048
     Dates: start: 20170301, end: 20170313
  6. UPTRAVI [Suspect]
     Active Substance: SELEXIPAG
     Dosage: 0.2 MG, BID
     Route: 048
     Dates: start: 20170104, end: 20170120
  7. ADEMPAS [Suspect]
     Active Substance: RIOCIGUAT
     Dosage: 1.5 MG, TID
     Route: 048
     Dates: start: 20151009, end: 20151022
  8. CEFTRIAXONE NA [Suspect]
     Active Substance: CEFTRIAXONE
     Indication: KLEBSIELLA BACTERAEMIA
     Dosage: 2 G, QD
     Route: 065
     Dates: start: 20171124, end: 20171204
  9. MEROPENEM. [Suspect]
     Active Substance: MEROPENEM
     Indication: KLEBSIELLA BACTERAEMIA
     Dosage: 1 G, QD
     Route: 065
     Dates: start: 20171205, end: 20171207
  10. GASTER [Concomitant]
     Active Substance: FAMOTIDINE
     Indication: GASTRITIS
     Dosage: 20 MG, QD
  11. FLUITRAN [Concomitant]
     Indication: CARDIAC FAILURE
     Dosage: 2 MG, QD
  12. OXYGEN. [Concomitant]
     Active Substance: OXYGEN
  13. UPTRAVI [Suspect]
     Active Substance: SELEXIPAG
     Dosage: 0.8 MG, BID
     Route: 048
     Dates: start: 20170215, end: 20170222
  14. FERROMIA [Suspect]
     Active Substance: SODIUM FERROUS CITRATE
     Indication: ANAEMIA
  15. FUROSEMIDE. [Suspect]
     Active Substance: FUROSEMIDE
     Indication: CARDIAC FAILURE
     Dosage: 10 MG, QD
     Route: 065
     Dates: start: 20171122, end: 20171122
  16. MIYA?BM [Suspect]
     Active Substance: CLOSTRIDIUM BUTYRICUM SPORES STRAIN M-55
     Indication: ENTEROCOLITIS
     Dosage: 3 G, QD
     Route: 048
     Dates: start: 20171121
  17. PIMOBENDAN [Concomitant]
     Active Substance: PIMOBENDAN
     Indication: CARDIAC FAILURE
     Dosage: 3.75 MG, QD
  18. UPTRAVI [Suspect]
     Active Substance: SELEXIPAG
     Dosage: 1.0 MG, BID
     Route: 048
     Dates: start: 20170313, end: 20170706
  19. ALDACTONE A [Concomitant]
     Active Substance: SPIRONOLACTONE
     Indication: CARDIAC FAILURE
     Dosage: 25 MG, QD
  20. CODEINE PHOSPHATE [Concomitant]
     Active Substance: CODEINE PHOSPHATE
  21. OPSUMIT [Suspect]
     Active Substance: MACITENTAN
     Indication: PULMONARY ARTERIAL HYPERTENSION
     Dosage: 5 MG, BID
     Route: 048
     Dates: start: 20150707
  22. ADEMPAS [Suspect]
     Active Substance: RIOCIGUAT
     Dosage: 1 MG, TID
     Route: 048
     Dates: start: 20150925, end: 20151008
  23. CARBOCISTEINE [Suspect]
     Active Substance: CARBOCYSTEINE
     Indication: UPPER RESPIRATORY TRACT INFLAMMATION
     Dosage: 750 MG, QD
     Route: 048
     Dates: start: 20171006, end: 20171012
  24. ADCIRCA [Concomitant]
     Active Substance: TADALAFIL
  25. ADEMPAS [Suspect]
     Active Substance: RIOCIGUAT
     Indication: PULMONARY ARTERIAL HYPERTENSION
     Dosage: 0.5 MG, TID
     Route: 048
     Dates: start: 20150909, end: 20150924
  26. MAGNESIUM OXIDE. [Suspect]
     Active Substance: MAGNESIUM OXIDE
     Indication: CONSTIPATION
     Dosage: 2 G, QD
     Route: 048
     Dates: start: 20170807, end: 20170920
  27. GLUCONSAN K [Concomitant]
     Active Substance: POTASSIUM GLUCONATE
     Indication: HYPOKALAEMIA
     Dosage: 12 MEQ, QD
  28. ASVERIN [Concomitant]
  29. ADEMPAS [Suspect]
     Active Substance: RIOCIGUAT
     Dosage: 2 MG, TID
     Route: 048
     Dates: start: 20151023, end: 20151217
  30. ADEMPAS [Suspect]
     Active Substance: RIOCIGUAT
     Dosage: 2.5 MG, TID
     Route: 048
     Dates: start: 20151218
  31. PROCYLIN [Concomitant]
     Active Substance: BERAPROST SODIUM
  32. FEXOFENADINE [Concomitant]
     Active Substance: FEXOFENADINE HYDROCHLORIDE
  33. UPTRAVI [Suspect]
     Active Substance: SELEXIPAG
     Dosage: 0.4 MG, BID
     Route: 048
     Dates: start: 20170120, end: 20170208
  34. UPTRAVI [Suspect]
     Active Substance: SELEXIPAG
     Dosage: 0.6 MG, BID
     Route: 048
     Dates: start: 20170208, end: 20170215
  35. FERROMIA [Suspect]
     Active Substance: SODIUM FERROUS CITRATE
     Indication: IRON DEFICIENCY ANAEMIA
     Dosage: 100 MG, QD
     Route: 048
     Dates: start: 20170731, end: 20171004
  36. MUCODYNE [Concomitant]
     Active Substance: CARBOCYSTEINE
  37. UPTRAVI [Suspect]
     Active Substance: SELEXIPAG
     Dosage: 1 MG, BID
     Route: 048
     Dates: start: 20170222, end: 20170301
  38. UPTRAVI [Suspect]
     Active Substance: SELEXIPAG
     Dosage: 1.1 MG, BID
     Route: 048
     Dates: start: 20170707, end: 20171004
  39. UPTRAVI [Suspect]
     Active Substance: SELEXIPAG
     Dosage: 1.2 MG, BID
     Route: 048
     Dates: start: 20171005, end: 20171101
  40. UPTRAVI [Suspect]
     Active Substance: SELEXIPAG
     Dosage: 1.3 MG, BID
     Route: 048
     Dates: start: 20171102, end: 20171124

REACTIONS (25)
  - Right ventricular failure [Not Recovered/Not Resolved]
  - Concomitant disease aggravated [Not Recovered/Not Resolved]
  - Hepatic function abnormal [Not Recovered/Not Resolved]
  - Weight decreased [Recovering/Resolving]
  - Alanine aminotransferase increased [Not Recovered/Not Resolved]
  - Hypotension [Recovered/Resolved]
  - Anaemia [Recovered/Resolved]
  - White blood cell count decreased [Recovered/Resolved]
  - Constipation [Recovered/Resolved]
  - Enterocolitis [Not Recovered/Not Resolved]
  - Thrombocytopenia [Recovered/Resolved]
  - Iron deficiency anaemia [Recovered/Resolved]
  - Pneumonia [Recovered/Resolved]
  - Nausea [Recovered/Resolved]
  - Klebsiella bacteraemia [Recovered/Resolved]
  - Packed red blood cell transfusion [Unknown]
  - Upper respiratory tract inflammation [Recovering/Resolving]
  - Pyrexia [Recovered/Resolved]
  - Cardiac failure [Recovering/Resolving]
  - Blood pressure decreased [Recovered/Resolved]
  - Epistaxis [Recovered/Resolved]
  - Brain natriuretic peptide increased [Recovered/Resolved]
  - Medication error [Unknown]
  - Blood bilirubin increased [Not Recovered/Not Resolved]
  - Platelet count decreased [Not Recovered/Not Resolved]

NARRATIVE: CASE EVENT DATE: 20150729
